FAERS Safety Report 8390238-3 (Version None)
Quarter: 2012Q1

REPORT INFORMATION
  Report Type: 
  Country: None (occurrence: None)
  Receive Date: 20120323
  Receipt Date: 20110331
  Transmission Date: 20120608
  Serious: Yes (Other)
  Sender: FDA-Public Use
  Company Number: 163-21880-11040219

PATIENT
  Age: 60 Year
  Sex: Female
  Weight: 75.1 kg

DRUGS (2)
  1. REVLIMID [Suspect]
     Indication: MULTIPLE MYELOMA
     Dosage: 15 MG 1 IN 1 D, PO
     Route: 048
     Dates: start: 20081101, end: 20100101
  2. REVLIMID [Suspect]
     Indication: MULTIPLE MYELOMA
     Dosage: 15 MG 1 IN 1 D, PO
     Route: 048
     Dates: start: 20110401

REACTIONS (1)
  - RED BLOOD CELL COUNT DECREASED [None]
